FAERS Safety Report 6449233-3 (Version None)
Quarter: 2009Q4

REPORT INFORMATION
  Report Type: 
  Country: None (occurrence: None)
  Receive Date: 20091120
  Receipt Date: 20091109
  Transmission Date: 20100525
  Serious: Yes (Death)
  Sender: FDA-Public Use
  Company Number: US-MYLANLABS-2009S1018661

PATIENT
  Age: 43 Year
  Sex: Female

DRUGS (5)
  1. ENALAPRIL MALEATE [Suspect]
     Indication: BACK PAIN
     Route: 048
     Dates: start: 20090710, end: 20090713
  2. METOPROLOL TARTRATE [Concomitant]
  3. PROPOXYPHENE HCL AND ACETOMINOPHEN [Concomitant]
     Dosage: 100/650MG
  4. SOMA [Concomitant]
  5. SIMVASTATIN [Concomitant]

REACTIONS (1)
  - INTENTIONAL OVERDOSE [None]
